FAERS Safety Report 6194009-8 (Version None)
Quarter: 2009Q2

REPORT INFORMATION
  Report Type: 
  Country: None (occurrence: None)
  Receive Date: 20090518
  Receipt Date: 20090513
  Transmission Date: 20091009
  Serious: Yes (Other)
  Sender: FDA-Public Use
  Company Number: PHHY2009FR09783

PATIENT
  Age: 30 Year
  Sex: Female

DRUGS (2)
  1. TEGRETOL [Suspect]
     Indication: DYSTHYMIC DISORDER
     Dosage: 300 MG DAILY
  2. TERBINAFINE HCL [Suspect]
     Dosage: 250 MG

REACTIONS (1)
  - NEUTROPHIL COUNT DECREASED [None]
